FAERS Safety Report 7506206-7 (Version None)
Quarter: 2011Q2

REPORT INFORMATION
  Report Type: 
  Country: None (occurrence: None)
  Receive Date: 20110526
  Receipt Date: 20110523
  Transmission Date: 20111010
  Serious: No
  Sender: FDA-Public Use
  Company Number: US-TEVA-277062USA

PATIENT
  Sex: Female
  Weight: 54.48 kg

DRUGS (1)
  1. PLAN B ONE-STEP [Suspect]
     Indication: POST COITAL CONTRACEPTION
     Dosage: 1.5 MILLIGRAM;
     Route: 048
     Dates: start: 20110326, end: 20110326

REACTIONS (6)
  - PREGNANCY AFTER POST COITAL CONTRACEPTION [None]
  - PALPITATIONS [None]
  - DYSPNOEA [None]
  - DRUG INEFFECTIVE [None]
  - ADNEXA UTERI PAIN [None]
  - VAGINAL DISCHARGE [None]
